FAERS Safety Report 8588678-2 (Version None)
Quarter: 2012Q3

REPORT INFORMATION
  Report Type: 
  Country: None (occurrence: None)
  Receive Date: 20120813
  Receipt Date: 20120810
  Transmission Date: 20120928
  Serious: Yes (Other)
  Sender: FDA-Public Use
  Company Number: PHHY2012DO068452

PATIENT
  Sex: Male

DRUGS (3)
  1. MEMANTINE HCL [Concomitant]
  2. EXELON [Suspect]
     Indication: DEMENTIA
     Dosage: 9.5 MG, UNK
     Route: 062
     Dates: start: 20100601
  3. Q10 [Concomitant]

REACTIONS (1)
  - THROMBOCYTOPENIA [None]
